FAERS Safety Report 4319828-1 (Version None)
Quarter: 2004Q1

REPORT INFORMATION
  Report Type: 
  Country: None (occurrence: None)
  Receive Date: 20040317
  Receipt Date: 20040312
  Transmission Date: 20041129
  Serious: Yes (Death)
  Sender: FDA-Public Use
  Company Number: 002#4#2004-00019 (0)

PATIENT
  Age: 52 Year
  Sex: Male

DRUGS (13)
  1. PPA/CPM-75/8MG (OTC) (PHENYLPROPANOLOAMINE HCL, CHLORPHENIRAMINE MALEA [Suspect]
     Dosage: ORAL
     Route: 048
  2. HEART MEDICATION [Concomitant]
  3. BLOOD PRESSURE MEDICATION [Concomitant]
  4. THYROID TAB [Concomitant]
  5. DIURETICS/WATER PILL [Concomitant]
  6. HORMONES [Concomitant]
  7. ASTHMA-BREATHING MEDICATIONS [Concomitant]
  8. NASAL SPRAYS [Concomitant]
  9. AMPHETAMINES [Concomitant]
  10. ERGOTAMINE PREPARATIONS [Concomitant]
  11. DRUGS FOR MIGRAINES [Concomitant]
  12. TYLENOL (CAPLET) [Concomitant]
  13. BC-COLD [Concomitant]

REACTIONS (5)
  - ASTHENIA [None]
  - CARDIAC DISORDER [None]
  - CEREBROVASCULAR ACCIDENT [None]
  - HYPERTENSION [None]
  - MYOCARDIAL INFARCTION [None]
